FAERS Safety Report 10913521 (Version 1)
Quarter: 2015Q1

REPORT INFORMATION
  Report Type: Spontaneous
  Country: US (occurrence: US)
  Receive Date: 20150313
  Receipt Date: 20150313
  Transmission Date: 20150721
  Serious: Yes (Hospitalization)
  Sender: FDA-Public Use
  Company Number: US-ASTRAZENECA-2015SE22864

PATIENT
  Age: 69 Year
  Sex: Female

DRUGS (4)
  1. LOSARTAN-HYDROCHLOROTHIAZIDE [Concomitant]
  2. METFORMIN [Concomitant]
     Active Substance: METFORMIN HYDROCHLORIDE
  3. SAXAGLIPTIN [Suspect]
     Active Substance: SAXAGLIPTIN
     Indication: DIABETES MELLITUS
     Route: 048
  4. AMLODIPINE [Concomitant]
     Active Substance: AMLODIPINE BESYLATE

REACTIONS (1)
  - Nephropathy [Recovered/Resolved]
